FAERS Safety Report 18004721 (Version 2)
Quarter: 2020Q3

REPORT INFORMATION
  Report Type: Report from Study
  Country: AU (occurrence: AU)
  Receive Date: 20200709
  Receipt Date: 20200722
  Transmission Date: 20201103
  Serious: Yes (Other)
  Sender: FDA-Public Use
  Company Number: AU-PFIZER INC-2020-07877

PATIENT
  Age: 84 Year
  Sex: Male

DRUGS (2)
  1. BRAFTOVI [Suspect]
     Active Substance: ENCORAFENIB
     Indication: COLORECTAL CANCER METASTATIC
     Dosage: 4 DF, DAILY (300 MG (4 X 75 MG) DAILY)
     Route: 065
  2. BRAFTOVI [Suspect]
     Active Substance: ENCORAFENIB
     Dosage: 3 DF, DAILY (3 DF (3 X 75 MG)
     Route: 065

REACTIONS (2)
  - Weight decreased [Unknown]
  - Malaise [Unknown]
